FAERS Safety Report 23531345 (Version 1)
Quarter: 2024Q1

REPORT INFORMATION
  Report Type: Spontaneous
  Country: US (occurrence: US)
  Receive Date: 20240216
  Receipt Date: 20240216
  Transmission Date: 20240410
  Serious: No
  Sender: FDA-Public Use
  Company Number: US-CLOVIS ONCOLOGY-CLO-2023-000523

PATIENT
  Age: 94 Year
  Sex: Female

DRUGS (1)
  1. RUBRACA [Suspect]
     Active Substance: RUCAPARIB CAMSYLATE
     Indication: Product used for unknown indication
     Dates: end: 20230814

REACTIONS (4)
  - Depression [Unknown]
  - Diarrhoea [Unknown]
  - Decreased appetite [Unknown]
  - Taste disorder [Unknown]
